FAERS Safety Report 9331560 (Version 2)
Quarter: 2014Q2

REPORT INFORMATION
  Report Type: Spontaneous
  Country: US (occurrence: US)
  Receive Date: 20130605
  Receipt Date: 20140619
  Transmission Date: 20141212
  Serious: No
  Sender: FDA-Public Use
  Company Number: US-PFIZER INC-2013167549

PATIENT
  Age: 60 Year
  Sex: Female

DRUGS (11)
  1. PROTONIX [Suspect]
     Dosage: UNK
  2. MOTRIN [Suspect]
     Dosage: UNK
  3. PREDNISONE [Suspect]
     Dosage: UNK
  4. ZITHROMAX [Suspect]
     Dosage: UNK
  5. ASPIRIN [Suspect]
     Dosage: UNK
  6. ALEVE [Suspect]
     Dosage: UNK
  7. TYLENOL [Suspect]
     Dosage: UNK
  8. VICODIN [Suspect]
     Dosage: UNK
  9. DARVOCET [Suspect]
     Dosage: UNK
  10. LEVAQUIN [Suspect]
     Dosage: UNK
  11. PERCOCET [Suspect]
     Dosage: UNK

REACTIONS (1)
  - Drug hypersensitivity [Unknown]
